FAERS Safety Report 5051370-5 (Version None)
Quarter: 2006Q3

REPORT INFORMATION
  Report Type: 
  Country: None (occurrence: None)
  Receive Date: 20060710
  Receipt Date: 20060626
  Transmission Date: 20061208
  Serious: Yes (Other)
  Sender: FDA-Public Use
  Company Number: 2006073252

PATIENT
  Age: 69 Year
  Sex: Female
  Weight: 80.7403 kg

DRUGS (5)
  1. BEXTRA [Suspect]
     Indication: ARTHRALGIA
     Dates: start: 20040901, end: 20041101
  2. PREDNISONE TAB [Concomitant]
  3. ANTIBIOTICS (ANTIBIOTICS) [Concomitant]
  4. ACETYLSALICYLIC ACID ENTERIC COATED (ACETYLSALICYLIC ACID) [Concomitant]
  5. LIPITOR [Concomitant]

REACTIONS (7)
  - ARRHYTHMIA [None]
  - ATRIAL FIBRILLATION [None]
  - BLADDER OPERATION [None]
  - CARDIOMEGALY [None]
  - DILATATION ATRIAL [None]
  - HEART RATE INCREASED [None]
  - STRESS [None]
